FAERS Safety Report 4838351-9 (Version None)
Quarter: 2005Q4

REPORT INFORMATION
  Report Type: 
  Country: None (occurrence: None)
  Receive Date: 20051123
  Receipt Date: 20051116
  Transmission Date: 20060501
  Serious: Yes (Death)
  Sender: FDA-Public Use
  Company Number: 2005PV004475

PATIENT
  Age: 62 Year
  Sex: Female
  Weight: 107.0489 kg

DRUGS (6)
  1. BYETTA [Suspect]
     Indication: DIABETES MELLITUS NON-INSULIN-DEPENDENT
     Dosage: 5 MCG;BID;SC
     Route: 058
     Dates: start: 20051107, end: 20051114
  2. GLUCOPHAGE [Concomitant]
  3. NPH INSULIN [Concomitant]
  4. LISINOPRIL [Concomitant]
  5. SYNTHROID [Concomitant]
  6. HUMALOG [Concomitant]

REACTIONS (1)
  - DEATH [None]
